FAERS Safety Report 4866967-2 (Version None)
Quarter: 2005Q4

REPORT INFORMATION
  Report Type: 
  Country: None (occurrence: None)
  Receive Date: 20051220
  Receipt Date: 19990420
  Transmission Date: 20060501
  Serious: Yes (Death, Hospitalization)
  Sender: FDA-Public Use
  Company Number: 8-98236-001Z

PATIENT
  Age: 70 Year
  Sex: Female

DRUGS (3)
  1. GEMITUZUMAB OZOGAMICIN (GEMITUZUMAB OZOGAMICIN, INJECTION [Suspect]
     Indication: ACUTE MYELOID LEUKAEMIA
     Dosage: 9 MG/SQ.M INTRAVENOUS
     Route: 042
     Dates: start: 19980812, end: 19980812
  2. LEVOTHYROXINE SODIUM [Concomitant]
  3. ALLOPURINOL [Concomitant]

REACTIONS (1)
  - THROMBOCYTOPENIA [None]
